FAERS Safety Report 8234014-0 (Version None)
Quarter: 2012Q1

REPORT INFORMATION
  Report Type: 
  Country: None (occurrence: None)
  Receive Date: 20120326
  Receipt Date: 20120315
  Transmission Date: 20120608
  Serious: No
  Sender: FDA-Public Use
  Company Number: US-B.I. PHARMACEUTICALS,INC./RIDGEFIELD-2012-BP-05032BP

PATIENT
  Age: 91 Year
  Sex: Male

DRUGS (19)
  1. LASIX [Concomitant]
     Indication: CARDIAC FAILURE
  2. PRADAXA [Suspect]
     Indication: ATRIAL FIBRILLATION
     Dosage: 300 MG
     Route: 048
  3. OXYCONTIN [Concomitant]
     Indication: PAIN
     Route: 048
  4. VESICARE [Concomitant]
     Indication: PROSTATE CANCER
     Dosage: 0.4 MG
     Route: 048
  5. TYLENOL [Concomitant]
     Indication: PAIN
     Route: 048
  6. SENNA LAX [Concomitant]
     Route: 048
  7. SPIRIVA [Suspect]
  8. DULCOLAX [Suspect]
     Dosage: 100 MG
     Route: 048
  9. PERCOCET [Concomitant]
     Indication: PAIN
     Route: 048
  10. MICRO-K [Concomitant]
     Indication: HYPOKALAEMIA
  11. TRIAMCINOLONE [Concomitant]
     Indication: SKIN LESION
     Route: 061
  12. FLOMAX [Suspect]
     Dosage: 0.4 MG
     Route: 048
  13. MICARDIS [Suspect]
     Dosage: 40 MG
     Route: 048
  14. METOPROLOL SUCCINATE [Concomitant]
     Indication: CARDIAC FAILURE
     Dosage: 50 MG
     Route: 048
  15. OMNARIS [Concomitant]
     Route: 045
  16. LACTULOSE 10GM/15ML SOLUTION [Concomitant]
     Route: 048
  17. AMBIEN [Concomitant]
     Indication: INSOMNIA
     Dosage: 5 MG
     Route: 048
  18. FIBER POWDER [Concomitant]
     Route: 048
  19. POLYETHYLENE GLYCOL [Concomitant]

REACTIONS (1)
  - GASTROINTESTINAL HAEMORRHAGE [None]
